FAERS Safety Report 23223463 (Version 1)
Quarter: 2023Q4

REPORT INFORMATION
  Report Type: Spontaneous
  Country: NL (occurrence: NL)
  Receive Date: 20231123
  Receipt Date: 20231123
  Transmission Date: 20240110
  Serious: Yes (Hospitalization)
  Sender: FDA-Public Use
  Company Number: None

PATIENT
  Age: 90 Year
  Sex: Male

DRUGS (2)
  1. TOCILIZUMAB [Suspect]
     Active Substance: TOCILIZUMAB
     Indication: Rheumatoid arthritis
     Dosage: TIJDELIJK STOPPED (IMMIDDELS WEER HERSTART, UIT DOSSIER MAAK IK OP DAT HET BEGIN MINE WHEN IT STARTS
     Route: 065
     Dates: start: 20190201
  2. CALCIUMCARBONAAT [Concomitant]

REACTIONS (4)
  - Cerebral infarction [Recovered/Resolved]
  - Endocarditis [Recovered/Resolved]
  - Aphasia [Recovered/Resolved]
  - Streptococcal bacteraemia [Recovered/Resolved]

NARRATIVE: CASE EVENT DATE: 20230206
